FAERS Safety Report 17137076 (Version 2)
Quarter: 2020Q1

REPORT INFORMATION
  Report Type: Report from Study
  Country: AU (occurrence: AU)
  Receive Date: 20191210
  Receipt Date: 20200124
  Transmission Date: 20200409
  Serious: Yes (Death)
  Sender: FDA-Public Use
  Company Number: AU-TOLMAR, INC.-19AU000735

PATIENT
  Age: 76 Year
  Sex: Male

DRUGS (1)
  1. ELIGARD [Suspect]
     Active Substance: LEUPROLIDE ACETATE
     Indication: PROSTATE CANCER
     Dosage: 22.5 MG, Q 3 MONTH
     Route: 058
     Dates: start: 20170413

REACTIONS (4)
  - Arthralgia [Unknown]
  - Hot flush [Not Recovered/Not Resolved]
  - Death [Fatal]
  - Intentional dose omission [Unknown]

NARRATIVE: CASE EVENT DATE: 20200118
